FAERS Safety Report 12723505 (Version 1)
Quarter: 2016Q3

REPORT INFORMATION
  Report Type: Spontaneous
  Country: US (occurrence: US)
  Receive Date: 20160908
  Receipt Date: 20160908
  Transmission Date: 20161109
  Serious: No
  Sender: FDA-Public Use
  Company Number: US-PFIZER INC-2016420120

PATIENT
  Age: 78 Year
  Sex: Female
  Weight: 65 kg

DRUGS (6)
  1. CITRICAL /00751501/ [Concomitant]
     Active Substance: CALCIUM
     Indication: BLOOD CALCIUM ABNORMAL
     Dosage: 1 DF, 2X/DAY
  2. IBRANCE [Suspect]
     Active Substance: PALBOCICLIB
     Dosage: 100 MG, 1X/DAY, FOR 21 DAYS THEN OFF FOR 7 DAYS
     Dates: start: 2016
  3. FASLODEX [Concomitant]
     Active Substance: FULVESTRANT
     Indication: PROPHYLAXIS
  4. IBRANCE [Suspect]
     Active Substance: PALBOCICLIB
     Indication: BREAST CANCER METASTATIC
     Dosage: 125 MG, 1X/DAY, FOR 21 DAYS THEN OFF FOR 7 DAYS
     Dates: start: 201512
  5. FASLODEX [Concomitant]
     Active Substance: FULVESTRANT
     Indication: BREAST CANCER METASTATIC
     Dosage: 500 MG, MONTHLY, ONCE A MONTH
     Route: 030
     Dates: start: 201512
  6. CENTRUM SILVER /02363801/ [Concomitant]
     Active Substance: MINERALS\VITAMINS
     Indication: VITAMIN SUPPLEMENTATION
     Dosage: 1 DF, 1X/DAY

REACTIONS (2)
  - White blood cell count decreased [Recovered/Resolved]
  - Alopecia [Not Recovered/Not Resolved]

NARRATIVE: CASE EVENT DATE: 2016
